FAERS Safety Report 8185323-5 (Version None)
Quarter: 2012Q1

REPORT INFORMATION
  Report Type: 
  Country: None (occurrence: None)
  Receive Date: 20120305
  Receipt Date: 20120229
  Transmission Date: 20120608
  Serious: Yes (Hospitalization, Other)
  Sender: FDA-Public Use
  Company Number: PHHY2011CA22618

PATIENT
  Sex: Female

DRUGS (3)
  1. VITAMIN D [Concomitant]
  2. ZOLEDRONOC ACID [Suspect]
     Indication: OSTEOPOROSIS
     Dosage: 5 MG, UNK
     Route: 042
     Dates: start: 20100420
  3. ZOLEDRONOC ACID [Suspect]
     Dosage: 5 MG, UNK
     Route: 042
     Dates: start: 20110420

REACTIONS (11)
  - BLOOD GLUCOSE INCREASED [None]
  - PHLEBITIS [None]
  - SWELLING [None]
  - ERYTHEMA [None]
  - UPPER RESPIRATORY TRACT INFECTION [None]
  - GLYCOSYLATED HAEMOGLOBIN INCREASED [None]
  - CONTUSION [None]
  - BLOOD CALCIUM INCREASED [None]
  - GLOMERULAR FILTRATION RATE DECREASED [None]
  - PLATELET COUNT INCREASED [None]
  - RASH [None]
